FAERS Safety Report 16102007 (Version 1)
Quarter: 2019Q1

REPORT INFORMATION
  Report Type: Spontaneous
  Country: TH (occurrence: TH)
  Receive Date: 20190321
  Receipt Date: 20190321
  Transmission Date: 20190418
  Serious: Yes (Other)
  Sender: FDA-Public Use
  Company Number: PHHY2019TH064016

PATIENT
  Age: 3 Year
  Sex: Female

DRUGS (4)
  1. TACROLIMUS. [Suspect]
     Active Substance: TACROLIMUS
     Indication: IMMUNOSUPPRESSANT DRUG THERAPY
  2. PREDNISONE. [Suspect]
     Active Substance: PREDNISONE
     Indication: IMMUNOSUPPRESSANT DRUG THERAPY
  3. TACROLIMUS. [Suspect]
     Active Substance: TACROLIMUS
     Indication: LIVER TRANSPLANT
     Route: 065
  4. PREDNISONE. [Suspect]
     Active Substance: PREDNISONE
     Indication: LIVER TRANSPLANT
     Dosage: 0.42 MG/KG, QD
     Route: 065

REACTIONS (16)
  - Diarrhoea haemorrhagic [Unknown]
  - Lymphadenopathy mediastinal [Unknown]
  - Splenomegaly [Unknown]
  - Lymphadenopathy [Unknown]
  - Natural killer-cell lymphoblastic lymphoma [Unknown]
  - Diarrhoea [Unknown]
  - Portal vein thrombosis [Unknown]
  - Liver transplant rejection [Unknown]
  - Food allergy [Unknown]
  - Viral load increased [Unknown]
  - Cytomegalovirus infection [Unknown]
  - Transaminases increased [Unknown]
  - Post transplant lymphoproliferative disorder [Unknown]
  - Hepatic enzyme increased [Unknown]
  - Pyrexia [Unknown]
  - Hypoalbuminaemia [Unknown]
